FAERS Safety Report 7595526-6 (Version None)
Quarter: 2011Q3

REPORT INFORMATION
  Report Type: 
  Country: None (occurrence: None)
  Receive Date: 20110707
  Receipt Date: 20110615
  Transmission Date: 20111222
  Serious: Yes (Hospitalization)
  Sender: FDA-Public Use
  Company Number: US-GLAXOSMITHKLINE-A0806067A

PATIENT
  Age: 59 Year
  Sex: Female

DRUGS (5)
  1. CAPTOPRIL [Concomitant]
  2. METFORMIN HCL [Concomitant]
  3. GLUCOTROL [Concomitant]
  4. HYDROCHLOROTHIAZIDE [Concomitant]
  5. AVANDIA [Suspect]
     Indication: DIABETES MELLITUS
     Dosage: 4MG TWICE PER DAY
     Route: 048

REACTIONS (6)
  - VOMITING [None]
  - CEREBRAL SMALL VESSEL ISCHAEMIC DISEASE [None]
  - NAUSEA [None]
  - TRANSIENT ISCHAEMIC ATTACK [None]
  - DEHYDRATION [None]
  - ABDOMINAL PAIN [None]
